FAERS Safety Report 10083225 (Version 2)
Quarter: 2014Q2

REPORT INFORMATION
  Report Type: Report from Study
  Country: CN (occurrence: CN)
  Receive Date: 20140417
  Receipt Date: 20140417
  Transmission Date: 20141212
  Serious: Yes (Hospitalization)
  Sender: FDA-Public Use
  Company Number: CN-ROCHE-1225093

PATIENT
  Age: 55 Year
  Sex: Male
  Weight: 66 kg

DRUGS (13)
  1. OBINUTUZUMAB [Suspect]
     Indication: B-CELL LYMPHOMA
     Dosage: MOST RECENT DOSE RECEIVED ON 09/MAY/2013 AT A VOLUME OF 40 ML AND DOSE CONCENTRATION 4 MG/ML
     Route: 042
     Dates: start: 20130502
  2. CYCLOPHOSPHAMIDE [Suspect]
     Indication: B-CELL LYMPHOMA
     Dosage: MOST RECENT DOSE RECEIVED ON 03/MAY/2013 AT A DOSE OF 1282.5 MG
     Route: 042
     Dates: start: 20130503
  3. DOXORUBICIN [Suspect]
     Indication: B-CELL LYMPHOMA
     Dosage: MOST RECENT DOSE RECEIVED ON 03/MAY/2013 AT A DOSE OF 85.5 MG
     Route: 042
     Dates: start: 20130503
  4. VINCRISTINE [Suspect]
     Indication: B-CELL LYMPHOMA
     Dosage: MOST RECENT DOSE RECEIVED ON 03/MAY/2013 AT A DOSE OF 2 MG
     Route: 050
     Dates: start: 20130503
  5. PREDNISONE [Suspect]
     Indication: B-CELL LYMPHOMA
     Dosage: MOST RECENT DOSE RECEIVED ON 06/MAY/2013 AT A DOSE OF 100 MG
     Route: 048
     Dates: start: 20130502
  6. AMMONIUM GLYCYRRHIZATE [Concomitant]
     Indication: BLOOD BILIRUBIN DECREASED
     Route: 065
     Dates: start: 20130501, end: 20130505
  7. ACETAMINOPHEN [Concomitant]
     Indication: IRRITABILITY
     Route: 065
     Dates: start: 20130502, end: 20130502
  8. ACETAMINOPHEN [Concomitant]
     Route: 065
     Dates: start: 20130509, end: 20130509
  9. ACETAMINOPHEN [Concomitant]
     Route: 065
     Dates: start: 20130517, end: 20130517
  10. LANSOPRAZOLE [Concomitant]
     Indication: GASTRIC ULCER
     Route: 065
     Dates: start: 20130503, end: 20130505
  11. TROPISETRON [Concomitant]
     Indication: VOMITING
     Route: 065
     Dates: start: 20130503, end: 20130503
  12. SODIUM BICARBONATE [Concomitant]
     Route: 065
     Dates: start: 20130503, end: 20130506
  13. AMOXICILLIN [Concomitant]
     Indication: INFECTION
     Route: 065
     Dates: start: 20130515, end: 20130518

REACTIONS (1)
  - Bone marrow failure [Recovered/Resolved]
